FAERS Safety Report 10488629 (Version 1)
Quarter: 2014Q4

REPORT INFORMATION
  Report Type: Spontaneous
  Country: US (occurrence: US)
  Receive Date: 20141002
  Receipt Date: 20141002
  Transmission Date: 20150528
  Serious: Yes (Hospitalization)
  Sender: FDA-Public Use
  Company Number: US-BAYER-2014-146155

PATIENT
  Age: 44 Year
  Sex: Female

DRUGS (3)
  1. EXCEDRIN [CAFFEINE,PARACETAMOL] [Concomitant]
     Dosage: UNK UNK, PRN
  2. SOTRET [Concomitant]
     Active Substance: ISOTRETINOIN
     Dosage: 40 MG, TABLET
  3. YAZ [Suspect]
     Active Substance: DROSPIRENONE\ETHINYL ESTRADIOL
     Indication: MENORRHAGIA

REACTIONS (1)
  - Pulmonary embolism [None]

NARRATIVE: CASE EVENT DATE: 20080623
